FAERS Safety Report 9255419 (Version 1)
Quarter: 2013Q2

REPORT INFORMATION
  Report Type: Spontaneous
  Country: US (occurrence: US)
  Receive Date: 20130425
  Receipt Date: 20130425
  Transmission Date: 20140414
  Serious: No
  Sender: FDA-Public Use
  Company Number: US-BRISTOL-MYERS SQUIBB COMPANY-17308651

PATIENT
  Sex: Female

DRUGS (1)
  1. HYDROXYUREA [Suspect]

REACTIONS (2)
  - Alopecia [Unknown]
  - Nail discolouration [Unknown]
